FAERS Safety Report 9746246 (Version 2)
Quarter: 2013Q4

REPORT INFORMATION
  Report Type: Spontaneous
  Country: FR (occurrence: FR)
  Receive Date: 20131211
  Receipt Date: 20131223
  Transmission Date: 20140711
  Serious: Yes (Death, Life-Threatening, Hospitalization)
  Sender: FDA-Public Use
  Company Number: FR-PFIZER INC-2013350281

PATIENT
  Age: 88 Year
  Sex: Male

DRUGS (10)
  1. AMLOR [Suspect]
     Dosage: 5 MG(1DF), 1X/DAY
     Route: 048
     Dates: end: 20131024
  2. TAHOR [Suspect]
     Dosage: 80 MG(1DF), 1X/DAY
     Route: 048
     Dates: start: 201211, end: 20131024
  3. CORDARONE [Suspect]
     Indication: ATRIAL FIBRILLATION
     Dosage: 1000 MG, WEEKLY
     Route: 048
     Dates: start: 201211, end: 20131024
  4. CARDENSIEL [Suspect]
     Dosage: 1.25 MG(1DF), 1X/DAY
     Route: 048
     Dates: end: 20131024
  5. CARDENSIEL [Suspect]
     Dosage: UNK
     Dates: start: 20131116, end: 20131119
  6. COUMADINE [Suspect]
     Dosage: 1 DF, DAILY
     Route: 048
     Dates: end: 20131020
  7. PARIET [Suspect]
     Dosage: 20 MG, 2X/DAY
     Route: 048
     Dates: end: 20131024
  8. AERIUS [Suspect]
     Dosage: 5 MG(1DF), 1X/DAY
     Route: 048
     Dates: end: 20131020
  9. UROREC [Suspect]
     Dosage: 4 MG(1DF), 1X/DAY
     Route: 048
     Dates: end: 20131020
  10. AVODART [Concomitant]
     Dosage: 0.5 MG, 1X/DAY
     Route: 048
     Dates: end: 20131020

REACTIONS (1)
  - Interstitial lung disease [Fatal]
